FAERS Safety Report 15751912 (Version 1)
Quarter: 2018Q4

REPORT INFORMATION
  Report Type: Spontaneous
  Country: GB (occurrence: GB)
  Receive Date: 20181221
  Receipt Date: 20181221
  Transmission Date: 20190205
  Serious: Yes (Hospitalization)
  Sender: FDA-Public Use
  Company Number: GB-ANIPHARMA-2018-UK-000170

PATIENT
  Age: 83 Year
  Sex: Male
  Weight: 62 kg

DRUGS (12)
  1. ESCITALOPRAM [Suspect]
     Active Substance: ESCITALOPRAM OXALATE
     Dosage: 5 MG DAILY
     Route: 048
     Dates: start: 20180405, end: 20181120
  2. SPIRONOLACTONE. [Suspect]
     Active Substance: SPIRONOLACTONE
     Dosage: 25 MG DAILY
     Route: 048
     Dates: start: 2017
  3. SERESTA [Suspect]
     Active Substance: OXAZEPAM
     Dosage: 1 DF DAILY
     Route: 048
     Dates: start: 20180405
  4. KARDEGIC [Concomitant]
     Active Substance: ASPIRIN DL-LYSINE
     Dosage: UNK
     Route: 065
  5. AVODART [Concomitant]
     Active Substance: DUTASTERIDE
     Dosage: UNK
     Route: 065
  6. TENORDATE [Suspect]
     Active Substance: ATENOLOL\NIFEDIPINE
     Dosage: 1 DF DAILY
     Route: 048
     Dates: start: 2014
  7. LOVENOX [Concomitant]
     Active Substance: ENOXAPARIN SODIUM
     Dosage: UNK
     Route: 065
  8. CANDESARTAN. [Suspect]
     Active Substance: CANDESARTAN
     Indication: HYPERTENSION
     Dosage: 16 MG UNK
     Route: 048
  9. OMEXEL [Suspect]
     Active Substance: TAMSULOSIN HYDROCHLORIDE
     Dosage: 1 DF DAILY
     Route: 048
     Dates: start: 2014, end: 20181120
  10. SEEBRI BREEZHALER [Concomitant]
     Active Substance: GLYCOPYRROLATE
     Dosage: UNK
     Route: 065
  11. IMOVANE [Suspect]
     Active Substance: ZOPICLONE
     Dosage: 1 DF DAILY
     Route: 048
     Dates: start: 2014, end: 20181120
  12. LASILIX [Suspect]
     Active Substance: FUROSEMIDE
     Dosage: 4 DF DAILY / DOSE TEXT: REDUCED DOSE
     Route: 048
     Dates: start: 2017

REACTIONS (1)
  - Fall [Not Recovered/Not Resolved]

NARRATIVE: CASE EVENT DATE: 2018
